FAERS Safety Report 8594659-5 (Version None)
Quarter: 2012Q3

REPORT INFORMATION
  Report Type: 
  Country: None (occurrence: None)
  Receive Date: 20120815
  Receipt Date: 20120813
  Transmission Date: 20120928
  Serious: No
  Sender: FDA-Public Use
  Company Number: US-PFIZER INC-2012165565

PATIENT
  Age: 49 Year
  Sex: Female
  Weight: 71.7 kg

DRUGS (6)
  1. LOSARTAN [Concomitant]
     Indication: HYPERTENSION
     Dosage: 100 MG, DAILY
     Dates: start: 20120101
  2. JINTELI [Concomitant]
     Indication: HOT FLUSH
     Dosage: 1 MG, DAILY
     Route: 048
  3. CHANTIX [Suspect]
     Dosage: 1 MG, 2X/DAY
     Route: 048
     Dates: start: 20120701
  4. CHANTIX [Suspect]
     Indication: SMOKING CESSATION THERAPY
     Dosage: 0.5 MG, DAILY
     Route: 048
     Dates: start: 20120701, end: 20120701
  5. CHANTIX [Suspect]
     Dosage: 0.5 MG, 2X/DAY
     Route: 048
     Dates: start: 20120701, end: 20120701
  6. GLIMEPIRIDE/METFORMIN [Concomitant]
     Indication: DIABETES MELLITUS
     Dosage: TWO TABLETS OF 500 MG IN THE MORNING AND ONE TABLET OF 500 MG AT NIGHT
     Route: 048

REACTIONS (1)
  - ABNORMAL DREAMS [None]
